FAERS Safety Report 7591480-1 (Version None)
Quarter: 2011Q3

REPORT INFORMATION
  Report Type: 
  Country: None (occurrence: None)
  Receive Date: 20110706
  Receipt Date: 20110621
  Transmission Date: 20111222
  Serious: No
  Sender: FDA-Public Use
  Company Number: US-ROXANE LABORATORIES, INC.-2011-RO-00875RO

PATIENT
  Age: 3 Year
  Sex: Female

DRUGS (1)
  1. LEVETIRACETAM [Suspect]
     Indication: CONVULSION
     Dosage: 600 MG
     Route: 048
     Dates: start: 20100101

REACTIONS (3)
  - PHOTOSENSITIVITY REACTION [None]
  - RASH [None]
  - DRUG INEFFECTIVE [None]
